FAERS Safety Report 5466247-0 (Version None)
Quarter: 2007Q3

REPORT INFORMATION
  Report Type: 
  Country: None (occurrence: None)
  Receive Date: 20070924
  Receipt Date: 20070912
  Transmission Date: 20080115
  Serious: Yes (Other)
  Sender: FDA-Public Use
  Company Number: US-PFIZER INC-2007076971

PATIENT
  Sex: Female
  Weight: 66.363 kg

DRUGS (6)
  1. NEURONTIN [Suspect]
     Indication: MIGRAINE
     Dosage: DAILY DOSE:1200MG-FREQ:EVERYDAY
     Dates: start: 20050801, end: 20060127
  2. NEURONTIN [Suspect]
     Indication: ANXIETY
  3. ALL OTHER THERAPEUTIC PRODUCTS [Suspect]
     Indication: MIGRAINE
  4. XANAX [Concomitant]
     Indication: PANIC ATTACK
  5. KLONOPIN [Concomitant]
  6. CELEXA [Concomitant]

REACTIONS (7)
  - DEPRESSION [None]
  - FEAR [None]
  - INJECTION SITE INFLAMMATION [None]
  - MALAISE [None]
  - OEDEMA [None]
  - OFF LABEL USE [None]
  - URTICARIA [None]
